FAERS Safety Report 21898914 (Version 7)
Quarter: 2025Q1

REPORT INFORMATION
  Report Type: Spontaneous
  Country: US (occurrence: US)
  Receive Date: 20230123
  Receipt Date: 20250313
  Transmission Date: 20250408
  Serious: Yes (Other)
  Sender: PFIZER
  Company Number: US-PFIZER INC-PV202300012596

PATIENT
  Age: 81 Year
  Sex: Female

DRUGS (22)
  1. XELJANZ XR [Suspect]
     Active Substance: TOFACITINIB CITRATE
     Indication: Rheumatoid arthritis
  2. ACETAMINOPHEN [Concomitant]
     Active Substance: ACETAMINOPHEN
  3. ALPHA LIPOIC ACID [Concomitant]
     Active Substance: .ALPHA.-LIPOIC ACID
  4. ZEBETA [Concomitant]
     Active Substance: BISOPROLOL FUMARATE
  5. ALPHAGAN P [Concomitant]
     Active Substance: BRIMONIDINE TARTRATE
  6. DICLOFENAC [Concomitant]
     Active Substance: DICLOFENAC
  7. ZYRTEC [Concomitant]
     Active Substance: CETIRIZINE HYDROCHLORIDE
  8. PEPCID [Concomitant]
     Active Substance: FAMOTIDINE
  9. MOMETASONE FUROATE [Concomitant]
     Active Substance: MOMETASONE FUROATE
  10. XALATAN [Concomitant]
     Active Substance: LATANOPROST
  11. XOPENEX [Concomitant]
     Active Substance: LEVALBUTEROL HYDROCHLORIDE
  12. SINGULAIR [Concomitant]
     Active Substance: MONTELUKAST SODIUM
  13. PROCARDIA [Concomitant]
     Active Substance: NIFEDIPINE
  14. NITROSTAT [Concomitant]
     Active Substance: NITROGLYCERIN
  15. CRESTOR [Concomitant]
     Active Substance: ROSUVASTATIN CALCIUM
  16. JANUVIA [Concomitant]
     Active Substance: SITAGLIPTIN PHOSPHATE
  17. CARAFATE [Concomitant]
     Active Substance: SUCRALFATE
  18. STIOLTO RESPIMAT [Concomitant]
     Active Substance: OLODATEROL HYDROCHLORIDE\TIOTROPIUM BROMIDE MONOHYDRATE
  19. DESYREL [Concomitant]
     Active Substance: TRAZODONE HYDROCHLORIDE
  20. RETIN-A [Concomitant]
     Active Substance: TRETINOIN
  21. UBIQUINOL [Concomitant]
     Active Substance: UBIQUINOL
  22. DIOVAN [Concomitant]
     Active Substance: VALSARTAN

REACTIONS (3)
  - Blindness [Unknown]
  - Visual impairment [Unknown]
  - Pain [Unknown]
